FAERS Safety Report 7352887-0 (Version None)
Quarter: 2011Q1

REPORT INFORMATION
  Report Type: 
  Country: None (occurrence: None)
  Receive Date: 20110315
  Receipt Date: 20110308
  Transmission Date: 20110831
  Serious: Yes (Other)
  Sender: FDA-Public Use
  Company Number: A0917924A

PATIENT
  Age: 55 Year
  Sex: Female
  Weight: 62.7 kg

DRUGS (5)
  1. MULTIVITAMIN [Concomitant]
  2. NICODERM [Suspect]
     Indication: SMOKING CESSATION THERAPY
     Dosage: 21MG PER DAY
     Route: 062
     Dates: start: 20060101, end: 20060110
  3. CALCIUM CARBONATE [Concomitant]
  4. PROPRANOLOL HYDROCHLORIDE [Concomitant]
     Indication: TREMOR
     Dosage: 10MG PER DAY
     Route: 048
  5. CONJUGATED ESTROGENS [Concomitant]
     Indication: HORMONE REPLACEMENT THERAPY

REACTIONS (3)
  - LOSS OF CONSCIOUSNESS [None]
  - OVERDOSE [None]
  - VOMITING [None]
